FAERS Safety Report 9639396 (Version 1)
Quarter: 2013Q4

REPORT INFORMATION
  Report Type: Report from Study
  Country: CA (occurrence: CA)
  Receive Date: 20131022
  Receipt Date: 20131022
  Transmission Date: 20140711
  Serious: Yes (Other)
  Sender: FDA-Public Use
  Company Number: CA-ROCHE-1291495

PATIENT
  Sex: Female

DRUGS (4)
  1. ACTEMRA [Suspect]
     Indication: RHEUMATOID ARTHRITIS
     Route: 042
     Dates: start: 20121205
  2. LEFLUNOMIDE [Concomitant]
  3. REMICADE [Concomitant]
  4. METHOTREXATE [Concomitant]

REACTIONS (1)
  - Foot operation [Unknown]
